FAERS Safety Report 7550732-1 (Version None)
Quarter: 2011Q2

REPORT INFORMATION
  Report Type: 
  Country: None (occurrence: None)
  Receive Date: 20110609
  Receipt Date: 20110525
  Transmission Date: 20111010
  Serious: Yes (Hospitalization)
  Sender: FDA-Public Use
  Company Number: UTC-007449

PATIENT
  Age: 67 Year
  Sex: Male

DRUGS (4)
  1. TYVASO [Suspect]
     Indication: PULMONARY ARTERIAL HYPERTENSION
     Dosage: 120 MCG (30 MCG,4 IN 1 D), INHALATION
     Route: 055
     Dates: start: 20110308
  2. TRACLEER [Concomitant]
  3. COUMADIN [Concomitant]
  4. DIURETICS (DIURETICS) [Concomitant]

REACTIONS (1)
  - LUNG INFECTION [None]
